FAERS Safety Report 5494339-9 (Version None)
Quarter: 2007Q4

REPORT INFORMATION
  Report Type: 
  Country: None (occurrence: None)
  Receive Date: 20071015
  Receipt Date: 20070308
  Transmission Date: 20080405
  Serious: Yes (Other)
  Sender: FDA-Public Use
  Company Number: S03-USA-02642-01

PATIENT
  Age: 46 Year
  Sex: Female

DRUGS (6)
  1. LEXAPRO [Suspect]
     Indication: DEPRESSION
     Dosage: 10 MG QD PO
     Route: 048
     Dates: start: 20020916, end: 20021007
  2. LEXAPRO [Suspect]
     Indication: DEPRESSION
     Dosage: 5 MG QD PO
     Route: 048
     Dates: start: 20020913, end: 20020915
  3. LEXAPRO [Suspect]
     Indication: DEPRESSION
     Dosage: 20 MG QD PO
     Route: 048
     Dates: start: 20021008, end: 20021106
  4. LEXAPRO [Suspect]
     Indication: DEPRESSION
     Dosage: 10 MG QD PO
     Route: 048
     Dates: start: 20021107, end: 20030101
  5. LEXAPRO [Suspect]
     Indication: DEPRESSION
     Dates: start: 20031001
  6. EFFEXOR [Concomitant]

REACTIONS (10)
  - ABNORMAL DREAMS [None]
  - ADVERSE DRUG REACTION [None]
  - ANXIETY [None]
  - BURNING SENSATION [None]
  - DRY MOUTH [None]
  - FEELING ABNORMAL [None]
  - NIGHT SWEATS [None]
  - SUICIDAL IDEATION [None]
  - TREMOR [None]
  - WEIGHT DECREASED [None]
